FAERS Safety Report 4676235-X (Version None)
Quarter: 2005Q2

REPORT INFORMATION
  Report Type: 
  Country: None (occurrence: None)
  Receive Date: 20050527
  Receipt Date: 20050203
  Transmission Date: 20051028
  Serious: No
  Sender: FDA-Public Use
  Company Number: US-GLAXOSMITHKLINE-A0543699A

PATIENT
  Sex: Female

DRUGS (3)
  1. WELLBUTRIN XL [Suspect]
     Dosage: 300MG PER DAY
     Route: 048
  2. TYLENOL (CAPLET) [Concomitant]
  3. BENADRYL [Concomitant]

REACTIONS (6)
  - CONFUSIONAL STATE [None]
  - FOOD ALLERGY [None]
  - HEADACHE [None]
  - NAUSEA [None]
  - NICOTINE DEPENDENCE [None]
  - PANIC ATTACK [None]
